FAERS Safety Report 19035212 (Version 2)
Quarter: 2021Q4

REPORT INFORMATION
  Report Type: Other
  Country: US (occurrence: US)
  Receive Date: 20210320
  Receipt Date: 20211221
  Transmission Date: 20220303
  Serious: No
  Sender: FDA-Public Use
  Company Number: US-ACORDA-ACO_167931_2021

PATIENT

DRUGS (2)
  1. INBRIJA [Suspect]
     Active Substance: LEVODOPA
     Indication: Parkinson^s disease
     Dosage: 84 MILLIGRAM, PRN; CONTENTS OF 2 CPAUSLES 5 TIMES A DAY AS NEEDED; DO NOT SWALLOW CAPSULE
     Dates: start: 20210212
  2. INBRIJA [Suspect]
     Active Substance: LEVODOPA
     Indication: On and off phenomenon

REACTIONS (3)
  - Dementia [Unknown]
  - Parkinson^s disease [Not Recovered/Not Resolved]
  - Productive cough [Not Recovered/Not Resolved]
